FAERS Safety Report 18376271 (Version 1)
Quarter: 2020Q4

REPORT INFORMATION
  Report Type: Spontaneous
  Country: US (occurrence: US)
  Receive Date: 20201011
  Receipt Date: 20201011
  Transmission Date: 20210114
  Serious: Yes (Disabling)
  Sender: FDA-Public Use
  Company Number: None

PATIENT
  Sex: Female
  Weight: .9 kg

DRUGS (25)
  1. CYTOMEL [Concomitant]
     Active Substance: LIOTHYRONINE SODIUM
  2. ELIQUIS [Concomitant]
     Active Substance: APIXABAN
  3. CALCIUM [Concomitant]
     Active Substance: CALCIUM
  4. MAGNESIUM [Concomitant]
     Active Substance: MAGNESIUM
  5. VITAMIN C [Concomitant]
     Active Substance: ASCORBIC ACID
  6. ZINC. [Concomitant]
     Active Substance: ZINC
  7. IRON [Concomitant]
     Active Substance: IRON
  8. UROSIDOL [Concomitant]
  9. POTASSIUM [Concomitant]
     Active Substance: POTASSIUM
  10. MULTI-VITAMIN [Concomitant]
     Active Substance: .ALPHA.-TOCOPHEROL ACETATE, DL-\ASCORBIC ACID\CYANOCOBALAMIN\FLUORIDE ION\FOLIC ACID\NIACIN\PYRIDOXINE\RIBOFLAVIN\THIAMINE\VITAMIN A\VITAMIN D
  11. METHOTREXATE. [Concomitant]
     Active Substance: METHOTREXATE
  12. PRILOSEC [Concomitant]
     Active Substance: OMEPRAZOLE MAGNESIUM
  13. DIETHYLSTILBESTROL (DES) [Suspect]
     Active Substance: DIETHYLSTILBESTROL
     Indication: PROPHYLAXIS OF ABORTION
     Dates: start: 19560101, end: 19560111
  14. KARDIAZAM [Concomitant]
  15. COLCOCHINE [Concomitant]
  16. RESTASIS [Concomitant]
     Active Substance: CYCLOSPORINE
  17. METFORMIN [Concomitant]
     Active Substance: METFORMIN HYDROCHLORIDE
  18. ATELENOL [Concomitant]
  19. TYLENOL [Concomitant]
     Active Substance: ACETAMINOPHEN
  20. DIETHYLSTILBESTROL (DES) [Suspect]
     Active Substance: DIETHYLSTILBESTROL
     Indication: VAGINAL HAEMORRHAGE
     Dates: start: 19560101, end: 19560111
  21. FOLIC ACID. [Concomitant]
     Active Substance: FOLIC ACID
  22. VITAMIN D [Concomitant]
     Active Substance: VITAMIN D NOS
  23. SYNTHROID [Concomitant]
     Active Substance: LEVOTHYROXINE SODIUM
  24. PREDNISONE. [Concomitant]
     Active Substance: PREDNISONE
  25. FLECANIDE [Concomitant]
     Active Substance: FLECAINIDE

REACTIONS (5)
  - Uterine cyst [None]
  - Autoimmune disorder [None]
  - Cervix disorder [None]
  - Cervix carcinoma [None]
  - Breast cyst [None]

NARRATIVE: CASE EVENT DATE: 19560101
